FAERS Safety Report 24263435 (Version 1)
Quarter: 2024Q3

REPORT INFORMATION
  Report Type: Spontaneous
  Country: US (occurrence: US)
  Receive Date: 20240829
  Receipt Date: 20240829
  Transmission Date: 20241016
  Serious: Yes (Hospitalization, Other)
  Sender: Waylis
  Company Number: US-Zuellig Korea-ATNAHS20240802445

PATIENT
  Age: 69 Year
  Sex: Female

DRUGS (1)
  1. VALIUM [Suspect]
     Active Substance: DIAZEPAM
     Indication: Anxiety

REACTIONS (20)
  - Product use issue [Unknown]
  - Product prescribing error [Unknown]
  - Drug dependence [Unknown]
  - Drug tolerance [Unknown]
  - Mental impairment [Unknown]
  - Drug tolerance [Unknown]
  - Drug dependence [Unknown]
  - Seizure [Unknown]
  - Gastrointestinal mucosal disorder [Unknown]
  - Weight decreased [Unknown]
  - Gastritis [Unknown]
  - Tachycardia [Unknown]
  - Dyspnoea [Unknown]
  - Emotional poverty [Unknown]
  - Stress [Unknown]
  - Feeding disorder [Unknown]
  - Nervous system disorder [Unknown]
  - Mental impairment [Unknown]
  - Illness [Unknown]
  - Impaired work ability [Unknown]
